FAERS Safety Report 10902686 (Version 2)
Quarter: 2015Q2

REPORT INFORMATION
  Report Type: Spontaneous
  Country: US (occurrence: US)
  Receive Date: 20150310
  Receipt Date: 20150610
  Transmission Date: 20150821
  Serious: Yes (Hospitalization, Other)
  Sender: FDA-Public Use
  Company Number: US-009507513-1109USA01001

PATIENT
  Sex: Female
  Weight: 68.27 kg

DRUGS (6)
  1. FOSAMAX [Suspect]
     Active Substance: ALENDRONATE SODIUM
     Indication: OSTEOPOROSIS
     Dosage: 70 MG, QW
     Route: 048
     Dates: end: 20110126
  2. FOSAMAX [Suspect]
     Active Substance: ALENDRONATE SODIUM
     Indication: BONE DENSITY DECREASED
     Route: 048
  3. CALCIUM (UNSPECIFIED) [Concomitant]
     Active Substance: CALCIUM
     Indication: OSTEOPOROSIS
     Dosage: 1200 MG, QD
     Dates: start: 1988
  4. FOSAMAX [Suspect]
     Active Substance: ALENDRONATE SODIUM
     Indication: BONE DENSITY DECREASED
     Dosage: 10 MG, QD
     Route: 048
     Dates: start: 19951206
  5. ALENDRONATE SODIUM. [Suspect]
     Active Substance: ALENDRONATE SODIUM
     Indication: BONE DENSITY DECREASED
     Dosage: 70 MG, QW
     Route: 048
     Dates: start: 20070921, end: 20100208
  6. FOSAMAX [Suspect]
     Active Substance: ALENDRONATE SODIUM
     Dosage: 10 MG TABLETS/7 TABLETS ONCE A WEEK

REACTIONS (37)
  - Chest pain [Unknown]
  - Bone disorder [Unknown]
  - Breast mass [Unknown]
  - Weight increased [Unknown]
  - Blood alkaline phosphatase increased [Unknown]
  - Fractured sacrum [Recovering/Resolving]
  - Lumbar spinal stenosis [Unknown]
  - Osteopenia [Unknown]
  - Nausea [Unknown]
  - Femur fracture [Unknown]
  - Anxiety [Unknown]
  - Synovial cyst [Unknown]
  - Pneumonia [Unknown]
  - Parkinsonism [Unknown]
  - Asthenia [Unknown]
  - Treatment failure [Unknown]
  - Intramedullary rod insertion [Unknown]
  - Limb injury [Unknown]
  - Intestinal polyp [Unknown]
  - Panic attack [Unknown]
  - Increased tendency to bruise [Unknown]
  - Cervical radiculopathy [Unknown]
  - Paraesthesia [Unknown]
  - Dizziness [Unknown]
  - Osteoarthritis [Unknown]
  - Hypercholesterolaemia [Unknown]
  - Drug administration error [Unknown]
  - Ileus [Recovered/Resolved]
  - Sinusitis [Recovering/Resolving]
  - Arthralgia [Unknown]
  - Arthralgia [Not Recovered/Not Resolved]
  - Spinal laminectomy [Unknown]
  - Hypertension [Unknown]
  - Hyperkeratosis [Unknown]
  - Adverse event [Unknown]
  - Depression [Unknown]
  - Bone pain [Unknown]

NARRATIVE: CASE EVENT DATE: 1996
